FAERS Safety Report 5729164-4 (Version None)
Quarter: 2008Q2

REPORT INFORMATION
  Report Type: 
  Country: None (occurrence: None)
  Receive Date: 20080506
  Receipt Date: 20080502
  Transmission Date: 20081010
  Serious: Yes (Death)
  Sender: FDA-Public Use
  Company Number: CO-ASTRAZENECA-2008UW08523

PATIENT
  Age: 10 Day
  Sex: Male

DRUGS (2)
  1. MEROPENEM [Suspect]
     Indication: OSTEOMYELITIS
     Route: 042
     Dates: start: 20080401, end: 20080401
  2. VAMCOMICINE [Concomitant]
     Route: 042

REACTIONS (2)
  - MEDICATION TAMPERING [None]
  - OSTEOMYELITIS [None]
